FAERS Safety Report 9034228 (Version 1)
Quarter: 2013Q1

REPORT INFORMATION
  Report Type: Spontaneous
  Country: US (occurrence: None)
  Receive Date: 20130114
  Receipt Date: 20130114
  Transmission Date: 20140127
  Serious: Yes (Other)
  Sender: FDA-Public Use
  Company Number: KAD201301-000035

PATIENT
  Age: 47 Year
  Sex: Female

DRUGS (2)
  1. RIBAVIRIN (RIBAVIRIN) [Suspect]
  2. PEGINTERFERON ALFA-2A [Suspect]

REACTIONS (4)
  - Portal vein thrombosis [None]
  - Varices oesophageal [None]
  - Gastric varices [None]
  - Hypercoagulation [None]
